FAERS Safety Report 6363335-1 (Version None)
Quarter: 2009Q3

REPORT INFORMATION
  Report Type: 
  Country: None (occurrence: None)
  Receive Date: 20090919
  Receipt Date: 20090622
  Transmission Date: 20100115
  Serious: No
  Sender: FDA-Public Use
  Company Number: US-ABBOTT-09P-163-0581542-00

PATIENT
  Sex: Female
  Weight: 87.168 kg

DRUGS (7)
  1. HUMIRA [Suspect]
     Indication: CROHN'S DISEASE
     Route: 058
     Dates: start: 20080101
  2. LEVOTHYROXINE SODIUM [Concomitant]
     Indication: AUTOIMMUNE THYROIDITIS
     Route: 048
  3. INDAPAMIDE [Concomitant]
     Indication: FLUID RETENTION
     Route: 048
  4. LISINOPRIL [Concomitant]
     Indication: HYPERTENSION
     Route: 048
  5. PANTOPRAZOLE SODIUM [Concomitant]
     Indication: OESOPHAGITIS
     Route: 048
  6. MULTI-VITAMIN [Concomitant]
     Indication: MEDICAL DIET
     Dosage: UNKNOWN
     Route: 048
  7. CALCIUM/VITAMIN D [Concomitant]
     Indication: MEDICAL DIET
     Dosage: UNNOWN
     Route: 048

REACTIONS (4)
  - CHILLS [None]
  - DRUG DOSE OMISSION [None]
  - FATIGUE [None]
  - NAUSEA [None]
